FAERS Safety Report 9417252 (Version 3)
Quarter: 2013Q3

REPORT INFORMATION
  Report Type: Spontaneous
  Country: NL (occurrence: GB)
  Receive Date: 20130719
  Receipt Date: 20130912
  Transmission Date: 20140515
  Serious: Yes (Other)
  Sender: FDA-Public Use
  Company Number: AUR-APL-2013-06048

PATIENT
  Age: 83 Year
  Sex: Male

DRUGS (8)
  1. RAMIPRIL [Suspect]
     Indication: ANGINA PECTORIS
     Route: 048
     Dates: start: 20050307
  2. AMOXICILLIN + CLAVULANIC ACID [Concomitant]
     Indication: PROSTATITIS
     Dates: start: 20130507
  3. AMLODIPINE [Suspect]
     Route: 048
     Dates: start: 20130507
  4. AMIODARONE [Suspect]
     Indication: ATRIAL FIBRILLATION
     Route: 048
     Dates: start: 19990527
  5. ISOSORBIDE MONONITRATE [Suspect]
     Indication: ANGINA PECTORIS
     Dates: start: 19990726
  6. SIMVASTATIN (SIMVASTATIN) [Concomitant]
  7. OMEPRAZOLE (OMEPRAZOLE) [Concomitant]
  8. SUCRALAFATE (SUCRALAFATE) [Concomitant]

REACTIONS (4)
  - Drug interaction [None]
  - Atrial fibrillation [None]
  - Myocardial infarction [None]
  - Prostatitis [None]
